FAERS Safety Report 5026788-7 (Version None)
Quarter: 2006Q2

REPORT INFORMATION
  Report Type: 
  Country: None (occurrence: None)
  Receive Date: 20060615
  Receipt Date: 20060608
  Transmission Date: 20061013
  Serious: Yes (Other)
  Sender: FDA-Public Use
  Company Number: 2006SE03273

PATIENT
  Age: 28 Year
  Sex: Male

DRUGS (1)
  1. SEROQUEL [Suspect]
     Indication: BIPOLAR DISORDER
     Route: 048

REACTIONS (4)
  - ABDOMINAL DISTENSION [None]
  - HEPATIC STEATOSIS [None]
  - MOUTH HAEMORRHAGE [None]
  - PALLOR [None]
